FAERS Safety Report 11317074 (Version 3)
Quarter: 2015Q3

REPORT INFORMATION
  Report Type: Report from Study
  Country: JP (occurrence: JP)
  Receive Date: 20150728
  Receipt Date: 20150826
  Transmission Date: 20151125
  Serious: Yes (Other)
  Sender: FDA-Public Use
  Company Number: JP-OTSUKA-2015_006044

PATIENT

DRUGS (5)
  1. NITOROL R [Concomitant]
     Indication: ANGINA PECTORIS
     Dosage: 20 MG/DAY
     Route: 048
  2. MICARDIS [Concomitant]
     Active Substance: TELMISARTAN
     Indication: CARDIAC FAILURE
     Dosage: 40 MG/DAY
     Route: 048
  3. TOLVAPTAN [Suspect]
     Active Substance: TOLVAPTAN
     Indication: OEDEMA DUE TO CARDIAC DISEASE
     Dosage: 3.75 MG, QD
     Route: 048
     Dates: start: 20150304
  4. LASIX M [Concomitant]
     Active Substance: FUROSEMIDE
     Indication: CARDIAC FAILURE
     Dosage: 70 MG/DAY
     Route: 048
  5. NORVASC [Concomitant]
     Active Substance: AMLODIPINE BESYLATE
     Indication: HYPERTENSION
     Dosage: 2.5 MG/DAY
     Route: 048

REACTIONS (2)
  - Renal impairment [Recovered/Resolved]
  - Bradycardia [Recovering/Resolving]

NARRATIVE: CASE EVENT DATE: 20150305
